FAERS Safety Report 5904177-8 (Version None)
Quarter: 2008Q4

REPORT INFORMATION
  Report Type: 
  Country: None (occurrence: None)
  Receive Date: 20081001
  Receipt Date: 20080923
  Transmission Date: 20090506
  Serious: Yes (Hospitalization)
  Sender: FDA-Public Use
  Company Number: NO-TEVA-177814ISR

PATIENT
  Sex: Female

DRUGS (11)
  1. METHOTREXATE [Suspect]
     Indication: RHEUMATOID ARTHRITIS
     Route: 048
     Dates: start: 20050801, end: 20060601
  2. FOLIC ACID [Concomitant]
     Route: 048
     Dates: start: 20050801, end: 20060601
  3. HYDROXYCHLOROQUINE SULFATE [Concomitant]
     Indication: RHEUMATOID ARTHRITIS
  4. PREDNISOLONE [Concomitant]
     Indication: RHEUMATOID ARTHRITIS
     Dosage: 5-10 MG ONCE DAILY
     Route: 048
  5. CANDESARTAN CILEXETIL [Concomitant]
     Indication: HYPERTENSION
     Dosage: 5-10 MG ONCE DAILY
     Route: 048
  6. CLONIDINE [Concomitant]
  7. LANSOPRAZOLE [Concomitant]
     Indication: OESOPHAGITIS
  8. MOMETASONE FUROATE [Concomitant]
  9. DESLORATADINE [Concomitant]
  10. IBUPROFEN [Concomitant]
  11. ACETAMINOPHEN [Concomitant]

REACTIONS (1)
  - PANCREATITIS CHRONIC [None]
